FAERS Safety Report 18794638 (Version 1)
Quarter: 2021Q1

REPORT INFORMATION
  Report Type: Other
  Country: FR (occurrence: FR)
  Receive Date: 20210127
  Receipt Date: 20210127
  Transmission Date: 20210419
  Serious: Yes (Hospitalization, Other)
  Sender: FDA-Public Use
  Company Number: FR-ASPEN-GLO2020FR012781

PATIENT

DRUGS (6)
  1. AMOXICILLIN/CLAVULANIC ACID [Concomitant]
     Active Substance: AMOXICILLIN\CLAVULANIC ACID
     Indication: ERYSIPELAS
     Dosage: 1 GRAM, TID
     Route: 065
  2. DANAPAROID SODIUM [Suspect]
     Active Substance: DANAPAROID SODIUM
     Indication: HEPARIN-INDUCED THROMBOCYTOPENIA
     Dosage: UNK
     Route: 065
  3. ENOXAPARIN [Suspect]
     Active Substance: ENOXAPARIN
     Indication: ANTICOAGULANT THERAPY
     Dosage: 4000 INTERNATIONAL UNIT, QD
     Route: 065
  4. CEFOTAXIME [Concomitant]
     Active Substance: CEFOTAXIME SODIUM
     Indication: CHOLANGITIS ACUTE
     Dosage: UNK
     Route: 065
  5. DABIGATRAN ETEXILATE [Suspect]
     Active Substance: DABIGATRAN ETEXILATE
     Indication: HEPARIN-INDUCED THROMBOCYTOPENIA
     Dosage: 150 MILLIGRAM, BID
     Route: 065
  6. METRONIDAZOLE. [Concomitant]
     Active Substance: METRONIDAZOLE
     Indication: CHOLANGITIS ACUTE
     Dosage: UNK
     Route: 065

REACTIONS (12)
  - Cerebral infarction [Recovered/Resolved]
  - Hemiplegia [Not Recovered/Not Resolved]
  - Cerebral ischaemia [Recovered/Resolved]
  - Central nervous system lesion [Recovered/Resolved]
  - Autoimmune heparin-induced thrombocytopenia [Recovered/Resolved]
  - Rectal haemorrhage [Recovered/Resolved]
  - Disseminated intravascular coagulation [Recovered/Resolved]
  - Thrombosis [Recovered/Resolved]
  - Cerebrovascular accident [Unknown]
  - Deep vein thrombosis [Recovered/Resolved]
  - Ischaemia [Recovered/Resolved]
  - Petechiae [Recovered/Resolved]
